FAERS Safety Report 14765857 (Version 2)
Quarter: 2018Q2

REPORT INFORMATION
  Report Type: Spontaneous
  Country: US (occurrence: US)
  Receive Date: 20180416
  Receipt Date: 20180420
  Transmission Date: 20180711
  Serious: Yes (Life-Threatening, Hospitalization, Other)
  Sender: FDA-Public Use
  Company Number: US-ALLERGAN-1820805US

PATIENT
  Age: 13 Year
  Sex: Female

DRUGS (2)
  1. MORPHINE SULFATE UNK [Suspect]
     Active Substance: MORPHINE SULFATE
     Indication: PRODUCT USED FOR UNKNOWN INDICATION
     Dosage: UNK
     Route: 065
  2. CODEINE [Suspect]
     Active Substance: CODEINE
     Indication: PRODUCT USED FOR UNKNOWN INDICATION
     Dosage: UNK
     Route: 065

REACTIONS (12)
  - Acute chest syndrome [Unknown]
  - Visual impairment [Unknown]
  - Sickle cell anaemia with crisis [Unknown]
  - Acute kidney injury [Unknown]
  - Posterior reversible encephalopathy syndrome [Unknown]
  - Acute respiratory distress syndrome [Unknown]
  - Off label use [Unknown]
  - Overdose [Unknown]
  - Toxicity to various agents [Unknown]
  - Hypoxia [Recovering/Resolving]
  - Respiratory failure [Unknown]
  - Drug interaction [Unknown]
